FAERS Safety Report 6980417-1 (Version None)
Quarter: 2010Q3

REPORT INFORMATION
  Report Type: 
  Country: None (occurrence: None)
  Receive Date: 20100914
  Receipt Date: 20100602
  Transmission Date: 20110219
  Serious: Yes (Death)
  Sender: FDA-Public Use
  Company Number: US-ABBOTT-10P-163-0648144-00

PATIENT
  Sex: Male
  Weight: 81.266 kg

DRUGS (5)
  1. DEPAKOTE [Suspect]
     Indication: CONVULSION
     Route: 048
  2. FLUOXETINE [Concomitant]
     Indication: DEPRESSION
  3. LEVOTHYROXINE SODIUM [Concomitant]
     Indication: THYROID DISORDER
  4. PRAVASTATIN [Concomitant]
     Indication: CARDIAC DISORDER
  5. PHENYTOIN [Concomitant]
     Indication: CONVULSION

REACTIONS (1)
  - DEATH [None]
